FAERS Safety Report 7270145-X (Version None)
Quarter: 2011Q1

REPORT INFORMATION
  Report Type: 
  Country: None (occurrence: None)
  Receive Date: 20110202
  Receipt Date: 20110127
  Transmission Date: 20110831
  Serious: Yes (Hospitalization)
  Sender: FDA-Public Use
  Company Number: BR-US-EMD SERONO, INC.-7038967

PATIENT
  Sex: Male

DRUGS (3)
  1. REBIF [Suspect]
     Indication: RELAPSING-REMITTING MULTIPLE SCLEROSIS
     Dates: start: 20050704
  2. BACLOFEN [Concomitant]
  3. TYLENOL-500 [Concomitant]

REACTIONS (8)
  - PHOTOPSIA [None]
  - PYREXIA [None]
  - INFLUENZA [None]
  - FEELING COLD [None]
  - CRYING [None]
  - MONOPLEGIA [None]
  - DEPRESSED MOOD [None]
  - ERYTHEMA [None]
